FAERS Safety Report 11025999 (Version 2)
Quarter: 2015Q2

REPORT INFORMATION
  Report Type: Spontaneous
  Country: US (occurrence: US)
  Receive Date: 20150414
  Receipt Date: 20150501
  Transmission Date: 20150821
  Serious: Yes (Other)
  Sender: FDA-Public Use
  Company Number: US-SHIRE-US201503000

PATIENT
  Age: 60 Year
  Sex: Female
  Weight: 58.96 kg

DRUGS (4)
  1. GABAPENTIN. [Concomitant]
     Active Substance: GABAPENTIN
     Indication: RESTLESS LEGS SYNDROME
     Dosage: UNK(100 MG, 1-2), 1X/DAY:QD
     Route: 065
     Dates: start: 2009
  2. LIALDA [Suspect]
     Active Substance: MESALAMINE
     Dosage: 2.4 G (TWO TABLETS), 2X/DAY:BID
     Route: 048
  3. GABAPENTIN. [Concomitant]
     Active Substance: GABAPENTIN
     Dosage: UNK
  4. LIALDA [Suspect]
     Active Substance: MESALAMINE
     Indication: COLITIS ULCERATIVE
     Dosage: 1.2 G, 2X/DAY:BID
     Route: 048
     Dates: start: 2013, end: 20150323

REACTIONS (9)
  - Supraventricular tachycardia [Unknown]
  - Tachycardia [Recovering/Resolving]
  - Colitis ulcerative [Unknown]
  - Ventricular tachycardia [Unknown]
  - Presyncope [Recovered/Resolved]
  - Arrhythmia [Recovering/Resolving]
  - Cardiac disorder [Unknown]
  - Impaired driving ability [Recovered/Resolved]
  - Inappropriate schedule of drug administration [Recovered/Resolved]

NARRATIVE: CASE EVENT DATE: 2013
